FAERS Safety Report 8667642 (Version 3)
Quarter: 2013Q4

REPORT INFORMATION
  Report Type: Report from Study
  Country: US (occurrence: US)
  Receive Date: 20120717
  Receipt Date: 20131101
  Transmission Date: 20140711
  Serious: No
  Sender: FDA-Public Use
  Company Number: US-009507513-1207USA000840

PATIENT
  Age: 64 Year
  Sex: Female
  Weight: 72.56 kg

DRUGS (11)
  1. PEGINTRON [Suspect]
     Dosage: 230 MICROGRAM, QW, 0.5 ML
     Route: 058
  2. PHENERGAN (PROMETHAZINE HYDROCHLORIDE) [Concomitant]
     Dosage: 25 MG, UNK
  3. NORVASC [Concomitant]
     Dosage: 5 MG, UNK
  4. SYNTHROID [Concomitant]
     Dosage: 88 MICROGRAM, UNK
  5. ATENOLOL [Concomitant]
     Dosage: 100 MG, UNK
  6. LORAZEPAM [Concomitant]
     Dosage: 1 MG, UNK
  7. VITAMIN E [Concomitant]
     Dosage: 1000 IU, UNK
  8. PRILOSEC [Concomitant]
     Dosage: 10 MG, UNK
  9. VITAMINS (UNSPECIFIED) [Concomitant]
  10. MELATONIN [Concomitant]
     Dosage: 1 MG, UNK
  11. CHOLECALCIFEROL [Concomitant]
     Dosage: 1000 IU, UNK

REACTIONS (7)
  - Dysgeusia [Recovered/Resolved]
  - Diarrhoea [Recovered/Resolved]
  - Parosmia [Recovered/Resolved]
  - Nausea [Recovered/Resolved]
  - Insomnia [Recovered/Resolved]
  - Dizziness [Recovered/Resolved]
  - Fatigue [Recovered/Resolved]
